FAERS Safety Report 14163666 (Version 1)
Quarter: 2017Q4

REPORT INFORMATION
  Report Type: Spontaneous
  Country: AR (occurrence: AR)
  Receive Date: 20171106
  Receipt Date: 20171106
  Transmission Date: 20180321
  Serious: Yes (Other)
  Sender: FDA-Public Use
  Company Number: AR-ALLERGAN-1761593US

PATIENT

DRUGS (1)
  1. URSODEOXYCHOLIC ACID UNK [Suspect]
     Active Substance: URSODIOL
     Indication: CHOLANGITIS
     Dosage: UNK
     Route: 065

REACTIONS (3)
  - Varices oesophageal [Unknown]
  - Cholangitis [Unknown]
  - Portal hypertensive gastropathy [Unknown]
